FAERS Safety Report 4597384-0 (Version None)
Quarter: 2005Q1

REPORT INFORMATION
  Report Type: 
  Country: None (occurrence: None)
  Receive Date: 20050303
  Receipt Date: 20041101
  Transmission Date: 20050727
  Serious: Yes (Other)
  Sender: FDA-Public Use
  Company Number: US-GLAXOSMITHKLINE-A0532066A

PATIENT
  Sex: Female

DRUGS (9)
  1. REQUIP [Suspect]
     Indication: PARKINSON'S DISEASE
     Dosage: .25MG THREE TIMES PER DAY
     Route: 048
  2. NEURONTIN [Concomitant]
  3. MEVACOR [Concomitant]
  4. TRIAMTERENE [Concomitant]
  5. PREVACID [Concomitant]
  6. LORAZEPAM [Concomitant]
  7. DARVOCET [Concomitant]
  8. XENICAL [Concomitant]
  9. PERI-COLACE [Concomitant]

REACTIONS (1)
  - HALLUCINATION [None]
